FAERS Safety Report 5800836-6 (Version None)
Quarter: 2008Q3

REPORT INFORMATION
  Report Type: 
  Country: None (occurrence: None)
  Receive Date: 20080703
  Receipt Date: 20080623
  Transmission Date: 20090109
  Serious: Yes (Other)
  Sender: FDA-Public Use
  Company Number: US-GILEAD-2008-0016851

PATIENT
  Sex: Male

DRUGS (9)
  1. TRUVADA [Suspect]
     Indication: HIV INFECTION
     Dates: start: 20080401
  2. TRUVADA [Suspect]
     Dates: start: 20080601
  3. PREZISTA [Concomitant]
     Indication: HIV INFECTION
     Dates: start: 20080401
  4. ISENTRESS [Concomitant]
     Indication: HIV INFECTION
     Dates: start: 20080401
  5. INTELLENCE [Concomitant]
     Indication: HIV INFECTION
     Dates: start: 20080401
  6. NORVIR [Concomitant]
     Indication: HIV INFECTION
     Dates: start: 20080401
  7. DEPO-TESTOSTERONE [Concomitant]
  8. DIOVAN [Concomitant]
  9. SEPTRA DS [Concomitant]

REACTIONS (1)
  - BLOOD CREATININE INCREASED [None]
